FAERS Safety Report 7677181-X (Version None)
Quarter: 2011Q3

REPORT INFORMATION
  Report Type: 
  Country: None (occurrence: None)
  Receive Date: 20110811
  Receipt Date: 20110728
  Transmission Date: 20111222
  Serious: Yes (Other)
  Sender: FDA-Public Use
  Company Number: US-ELI_LILLY_AND_COMPANY-US201103006926

PATIENT
  Sex: Female

DRUGS (9)
  1. FORTEO [Suspect]
     Dosage: 20 UG, QD
     Route: 065
  2. FORTEO [Suspect]
     Dosage: 20 UG, QD
  3. FORTEO [Suspect]
     Dosage: 20 UG, DAILY (1/D)
     Route: 065
  4. PREDNISONE [Concomitant]
     Indication: POLYMYALGIA RHEUMATICA
  5. METOPROLOL TARTRATE [Concomitant]
     Indication: BLOOD PRESSURE
  6. VITAMIN B-12 [Concomitant]
  7. VITAMIN D [Concomitant]
  8. FORTEO [Suspect]
     Indication: OSTEOPOROSIS
     Dosage: 20 UG, DAILY (1/D)
     Route: 065
     Dates: start: 20100601
  9. LODIPINE [Concomitant]

REACTIONS (8)
  - MUSCULOSKELETAL DISCOMFORT [None]
  - MOVEMENT DISORDER [None]
  - BREAST CALCIFICATIONS [None]
  - DISCOMFORT [None]
  - BLOOD CALCIUM INCREASED [None]
  - BREAST CANCER STAGE IV [None]
  - VERTIGO [None]
  - BONE PAIN [None]
